FAERS Safety Report 25086710 (Version 2)
Quarter: 2025Q1

REPORT INFORMATION
  Report Type: Spontaneous
  Country: US (occurrence: US)
  Receive Date: 20250318
  Receipt Date: 20250318
  Transmission Date: 20250409
  Serious: Yes (Other)
  Sender: AMGEN
  Company Number: US-AMGEN-USASP2025048838

PATIENT
  Sex: Female

DRUGS (3)
  1. PROLIA [Suspect]
     Active Substance: DENOSUMAB
     Indication: Osteoporosis
     Route: 065
  2. PROLIA [Suspect]
     Active Substance: DENOSUMAB
  3. ENBREL [Suspect]
     Active Substance: ETANERCEPT
     Indication: Rheumatoid arthritis
     Dosage: 1 SYRINGE, QWK
     Route: 065

REACTIONS (9)
  - Coeliac disease [Recovered/Resolved]
  - Ill-defined disorder [Recovered/Resolved]
  - Off label use [Unknown]
  - Urticaria [Recovered/Resolved]
  - Dyspnoea [Recovered/Resolved]
  - Malaise [Recovered/Resolved]
  - Osteoporosis [Recovered/Resolved]
  - Drug ineffective [Recovered/Resolved]
  - Drug hypersensitivity [Recovered/Resolved]
